FAERS Safety Report 15043886 (Version 1)
Quarter: 2018Q2

REPORT INFORMATION
  Report Type: Report from Study
  Country: EG (occurrence: EG)
  Receive Date: 20180621
  Receipt Date: 20180621
  Transmission Date: 20180711
  Serious: Yes (Death, Other)
  Sender: FDA-Public Use
  Company Number: EG-SAKK-2018SA155050AA

PATIENT
  Age: 60 Year
  Sex: Female

DRUGS (1)
  1. INSULIN GLARGINE [Suspect]
     Active Substance: INSULIN GLARGINE
     Indication: TYPE 2 DIABETES MELLITUS
     Dosage: 10 IU, QD
     Route: 058
     Dates: start: 20170130, end: 20180124

REACTIONS (2)
  - Abscess limb [Unknown]
  - Diabetic coma [Fatal]

NARRATIVE: CASE EVENT DATE: 201711
